FAERS Safety Report 7388503-1 (Version None)
Quarter: 2011Q2

REPORT INFORMATION
  Report Type: 
  Country: None (occurrence: None)
  Receive Date: 20110401
  Receipt Date: 20110329
  Transmission Date: 20111010
  Serious: Yes (Death)
  Sender: FDA-Public Use
  Company Number: PHHY2011US22078

PATIENT
  Sex: Female

DRUGS (2)
  1. ARTHROTEC [Concomitant]
     Dosage: 50 MG, BID
     Route: 048
  2. RECLAST [Suspect]
     Indication: OSTEOPOROSIS
     Dosage: 5 MG,
     Route: 042
     Dates: start: 20100407

REACTIONS (1)
  - DEATH [None]
